FAERS Safety Report 8729036 (Version 5)
Quarter: 2013Q1

REPORT INFORMATION
  Report Type: Report from Study
  Country: JP (occurrence: JP)
  Receive Date: 20120815
  Receipt Date: 20130228
  Transmission Date: 20140127
  Serious: Yes (Hospitalization)
  Sender: FDA-Public Use
  Company Number: JP-PFIZER INC-2012185441

PATIENT
  Age: 70 Year
  Sex: Female
  Weight: 55 kg

DRUGS (32)
  1. BLINDED THERAPY [Suspect]
     Indication: PARKINSON^S DISEASE
     Dosage: DOUBLE BLIND (3MG OR PLACEBO) (1 IN 1 D)
     Route: 048
     Dates: start: 20111012, end: 20111019
  2. BLINDED THERAPY [Suspect]
     Dosage: DOUBLE BLIND (5MG OR PLACEBO) (1 IN 1 D)
     Route: 048
     Dates: start: 20111020
  3. CABASER [Suspect]
     Indication: PARKINSON^S DISEASE
     Dosage: 0.5 MG, 1X/DAY
     Route: 048
     Dates: start: 20111117
  4. LIPITOR [Suspect]
     Indication: HYPERLIPIDAEMIA
     Dosage: 5 MG, 1X/DAY
     Route: 048
     Dates: start: 20120713
  5. GASMOTIN [Suspect]
     Indication: PROPHYLAXIS
     Dosage: 5 MG, 2X/DAY
     Route: 048
  6. GASMOTIN [Suspect]
     Indication: GASTRITIS
     Dosage: 5 MG, 3X/DAY
     Route: 048
  7. RIVOTRIL [Suspect]
     Indication: INSOMNIA
     Dosage: 0.5 MG, 1X/DAY
     Route: 048
     Dates: start: 20070709, end: 20100314
  8. RIVOTRIL [Suspect]
     Dosage: 0.5 MG, 2X/DAY
     Route: 048
     Dates: start: 20100315, end: 20101114
  9. RIVOTRIL [Suspect]
     Dosage: 0.5 MG, 1X/DAY
     Route: 048
     Dates: start: 20101115, end: 20110612
  10. RIVOTRIL [Suspect]
     Dosage: 1 MG, 1X/DAY
     Route: 048
     Dates: start: 20110613
  11. MAGMITT [Suspect]
     Indication: CONSTIPATION
     Dosage: 660 MG, 3X/DAY
     Route: 048
     Dates: start: 20070710, end: 20110410
  12. MAGMITT [Suspect]
     Dosage: 1650 MG, 1X/DAY
     Route: 048
     Dates: start: 20110411, end: 20121015
  13. MAGMITT [Suspect]
     Dosage: 1320 MG, 1X/DAY
     Route: 048
     Dates: start: 20121016
  14. DOPACOL [Suspect]
     Indication: PARKINSON^S DISEASE
     Dosage: 50 MG, 4X/DAY
     Route: 048
     Dates: start: 20090525, end: 20090712
  15. DOPACOL [Suspect]
     Dosage: 300 MG, 1X/DAY
     Route: 048
     Dates: start: 20090713, end: 20110307
  16. DOPACOL [Suspect]
     Dosage: 350 MG, 1X/DAY
     Route: 048
     Dates: start: 20110308, end: 20110413
  17. DOPACOL [Suspect]
     Dosage: 100 MG, 4X/DAY
     Route: 048
     Dates: start: 20110414, end: 20120125
  18. DOPACOL [Suspect]
     Dosage: 550 MG, 1X/DAY
     Route: 048
     Dates: start: 20120126
  19. TIZANIN [Suspect]
     Indication: PARKINSON^S DISEASE
     Dosage: 1 MG, 3X/DAY
     Route: 048
     Dates: start: 20071220
  20. TIZANIN [Suspect]
     Indication: BACK PAIN
  21. ADOFEED [Suspect]
     Indication: BACK PAIN
     Dosage: UNK
     Route: 048
     Dates: start: 20080619
  22. COMTAN [Suspect]
     Indication: PARKINSON^S DISEASE
     Dosage: 100 MG, 3X/DAY
     Route: 048
     Dates: start: 20090615
  23. SYMMETREL [Suspect]
     Indication: PARKINSON^S DISEASE
     Dosage: 100 MG, 2X/DAY
     Route: 048
     Dates: start: 20090226, end: 20100609
  24. SYMMETREL [Suspect]
     Dosage: 150 MG, 1X/DAY
     Route: 048
     Dates: start: 20100610, end: 20100808
  25. SYMMETREL [Suspect]
     Dosage: 50 MG, 2X/DAY
     Route: 048
     Dates: start: 20100809
  26. BROTIZOLAM [Suspect]
     Indication: INSOMNIA
     Dosage: 0.25 MG, 1X/DAY
     Route: 048
     Dates: start: 20110414
  27. GASMET [Suspect]
     Indication: GASTRITIS
     Dosage: 20 MG, 1X/DAY
     Route: 048
     Dates: start: 20110506
  28. HALFDIGOXIN [Suspect]
     Indication: VENTRICULAR EXTRASYSTOLES
     Dosage: 0.125 MG, 1X/DAY
     Route: 048
     Dates: start: 20120315
  29. EURODIN [Suspect]
     Indication: INSOMNIA
     Dosage: 2 MG, 1X/DAY
     Route: 048
     Dates: start: 20120918, end: 20121210
  30. EURODIN [Suspect]
     Dosage: 1 MG, 1X/DAY
     Route: 048
     Dates: start: 20121211
  31. LAXOBERON [Suspect]
     Indication: CONSTIPATION
     Dosage: UNK
     Route: 048
     Dates: start: 20120705
  32. SODIUM PICOSULFATE [Suspect]
     Indication: CONSTIPATION
     Dosage: UNK
     Route: 048
     Dates: start: 20121016

REACTIONS (2)
  - Coronary artery disease [Not Recovered/Not Resolved]
  - Deafness neurosensory [Recovering/Resolving]
